FAERS Safety Report 7488770-X (Version None)
Quarter: 2011Q2

REPORT INFORMATION
  Report Type: 
  Country: None (occurrence: None)
  Receive Date: 20110518
  Receipt Date: 20110512
  Transmission Date: 20111010
  Serious: Yes (Hospitalization, Other)
  Sender: FDA-Public Use
  Company Number: DK-PFIZER INC-2010066548

PATIENT
  Age: 49 Year
  Sex: Male
  Weight: 75 kg

DRUGS (1)
  1. SULFASALAZINE [Suspect]
     Indication: ARTHRITIS REACTIVE
     Dosage: 1000 MG, 2X/DAY
     Route: 048
     Dates: start: 20091114, end: 20100128

REACTIONS (6)
  - LEUKOPENIA [None]
  - LIVER DISORDER [None]
  - ABDOMINAL PAIN [None]
  - BONE MARROW FAILURE [None]
  - CHILLS [None]
  - PYREXIA [None]
